FAERS Safety Report 18523202 (Version 1)
Quarter: 2020Q4

REPORT INFORMATION
  Report Type: Report from Study
  Country: US (occurrence: US)
  Receive Date: 20201119
  Receipt Date: 20201119
  Transmission Date: 20210114
  Serious: Yes (Life-Threatening, Hospitalization, Other)
  Sender: FDA-Public Use
  Company Number: NVSC2020US305863

PATIENT
  Age: 60 Year
  Sex: Female
  Weight: 75 kg

DRUGS (23)
  1. ALLOPURINOL. [Concomitant]
     Active Substance: ALLOPURINOL
     Indication: PRODUCT USED FOR UNKNOWN INDICATION
     Dosage: UNK
     Route: 065
     Dates: start: 20180201, end: 20180321
  2. ARTIFICIAL TEARS [Concomitant]
     Active Substance: GLYCERIN\HYPROMELLOSES\POLYETHYLENE GLYCOL 400
     Indication: PRODUCT USED FOR UNKNOWN INDICATION
     Dosage: UNK
     Route: 065
     Dates: start: 20180209, end: 20180215
  3. NORMAL SALINE [Concomitant]
     Active Substance: SODIUM CHLORIDE
     Indication: PRODUCT USED FOR UNKNOWN INDICATION
     Dosage: 50 CC OVER 02 HOURS
     Route: 065
  4. VANCOMYCIN [Concomitant]
     Active Substance: VANCOMYCIN
     Indication: PRODUCT USED FOR UNKNOWN INDICATION
     Dosage: 1000 MG, BID
     Route: 042
     Dates: start: 20180211, end: 20180212
  5. ACYCLOVIR. [Concomitant]
     Active Substance: ACYCLOVIR
     Route: 065
  6. FLAGYL [Concomitant]
     Active Substance: METRONIDAZOLE\METRONIDAZOLE HYDROCHLORIDE
     Indication: GASTROINTESTINAL DISORDER
     Dosage: UNK
     Route: 065
     Dates: end: 20180224
  7. FLUDARABINE PHOSPHATE. [Suspect]
     Active Substance: FLUDARABINE PHOSPHATE
     Indication: ACUTE MYELOID LEUKAEMIA
     Dosage: 50 MG, QD (DAYS 2 THROUGH 6)
     Route: 042
     Dates: start: 20180209, end: 20180213
  8. CYTARABINE. [Suspect]
     Active Substance: CYTARABINE
     Dosage: 3500 MG, QD (DAYS 2 THROUGH 6)
     Route: 042
     Dates: start: 20180212, end: 20180213
  9. ONDANSETRON [Concomitant]
     Active Substance: ONDANSETRON
     Indication: PRODUCT USED FOR UNKNOWN INDICATION
     Dosage: UNK
     Route: 065
     Dates: start: 20180208, end: 20180321
  10. OXYCODONE [Concomitant]
     Active Substance: OXYCODONE
     Indication: PRODUCT USED FOR UNKNOWN INDICATION
     Dosage: UNK
     Route: 065
     Dates: start: 20180209, end: 20180321
  11. PREDNISOLONE ACETATE. [Concomitant]
     Active Substance: PREDNISOLONE ACETATE
     Indication: PRODUCT USED FOR UNKNOWN INDICATION
     Dosage: UNK
     Route: 065
     Dates: start: 20180209, end: 20180217
  12. DIPHENHYDRAMINE. [Concomitant]
     Active Substance: DIPHENHYDRAMINE
     Indication: TRANSFUSION
     Dosage: 25 MG, PRN
     Route: 048
     Dates: start: 20180210, end: 20180321
  13. POSACONAZOLE [Concomitant]
     Active Substance: POSACONAZOLE
     Indication: INFECTION PROPHYLAXIS
     Dosage: UNK
     Route: 065
     Dates: start: 20180211
  14. IDARUBICIN HCL [Suspect]
     Active Substance: IDARUBICIN HYDROCHLORIDE
     Indication: ACUTE MYELOID LEUKAEMIA
     Dosage: 17.5 MG, QD (DAYS 2 THROUGH 4)
     Route: 042
     Dates: start: 20180209
  15. ZYRTEC [Concomitant]
     Active Substance: CETIRIZINE HYDROCHLORIDE
     Indication: PRODUCT USED FOR UNKNOWN INDICATION
     Dosage: UNK
     Route: 065
     Dates: start: 20180209, end: 20180213
  16. FENTANYL. [Concomitant]
     Active Substance: FENTANYL
     Indication: ENDOSCOPY GASTROINTESTINAL
     Dosage: 50 UG, QD
     Route: 042
     Dates: start: 20180215, end: 20180215
  17. ZARXIO [Suspect]
     Active Substance: FILGRASTIM-SNDZ
     Indication: ACUTE MYELOID LEUKAEMIA
     Dosage: 600 UG, QD (DAYS 1 THROUGH 5)
     Route: 058
     Dates: start: 20180208, end: 20180208
  18. PERI-COLACE [Concomitant]
     Active Substance: CASANTHRANOL\DOCUSATE SODIUM
     Indication: CONSTIPATION
     Dosage: 1 TABLET NIGHTLY, 8.6 - 50 MG
     Route: 048
     Dates: start: 20180209, end: 20180213
  19. ZARXIO [Suspect]
     Active Substance: FILGRASTIM-SNDZ
     Dosage: 480 UG, QD (DAYS 1 THROUGH 5)
     Route: 058
     Dates: start: 20180209, end: 20180212
  20. CYTARABINE. [Suspect]
     Active Substance: CYTARABINE
     Indication: ACUTE MYELOID LEUKAEMIA
     Dosage: 3500 MG, QD (DAYS 2 THROUGH 6)
     Route: 042
     Dates: start: 20180209, end: 20180211
  21. ACYCLOVIR. [Concomitant]
     Active Substance: ACYCLOVIR
     Indication: PRODUCT USED FOR UNKNOWN INDICATION
     Dosage: UNK
     Route: 065
     Dates: start: 20170627
  22. HYDREA [Concomitant]
     Active Substance: HYDROXYUREA
     Indication: PRODUCT USED FOR UNKNOWN INDICATION
     Dosage: UNK
     Route: 065
     Dates: start: 20180205
  23. AMLODIPINE [Concomitant]
     Active Substance: AMLODIPINE BESYLATE
     Indication: PRODUCT USED FOR UNKNOWN INDICATION
     Route: 065

REACTIONS (13)
  - Febrile neutropenia [Recovered/Resolved]
  - Gastrointestinal arteriovenous malformation [Unknown]
  - Critical illness [Unknown]
  - Tachypnoea [Unknown]
  - Coagulopathy [Unknown]
  - Blast cell count increased [Unknown]
  - Hiatus hernia [Unknown]
  - Heart rate increased [Unknown]
  - Lethargy [Unknown]
  - Treatment failure [Unknown]
  - Febrile neutropenia [Unknown]
  - Pyrexia [Unknown]
  - Oedema peripheral [Unknown]

NARRATIVE: CASE EVENT DATE: 20180209
